FAERS Safety Report 7264378-6 (Version None)
Quarter: 2011Q1

REPORT INFORMATION
  Report Type: 
  Country: None (occurrence: None)
  Receive Date: 20110131
  Receipt Date: 20110113
  Transmission Date: 20110831
  Serious: No
  Sender: FDA-Public Use
  Company Number: US-BIOGENIDEC-2011BI002511

PATIENT
  Sex: Male

DRUGS (2)
  1. AVONEX [Suspect]
     Route: 030
     Dates: start: 20080501
  2. AVONEX [Suspect]
     Indication: MULTIPLE SCLEROSIS
     Route: 030
     Dates: start: 20080709

REACTIONS (5)
  - DRUG INEFFECTIVE [None]
  - FATIGUE [None]
  - BALANCE DISORDER [None]
  - GENERAL SYMPTOM [None]
  - MEMORY IMPAIRMENT [None]
